FAERS Safety Report 10210570 (Version 1)
Quarter: 2014Q2

REPORT INFORMATION
  Report Type: Spontaneous
  Country: US (occurrence: None)
  Receive Date: 20140528
  Receipt Date: 20140528
  Transmission Date: 20141212
  Serious: Yes (Death, Hospitalization)
  Sender: FDA-Public Use
  Company Number: 2014HINLIT0455

PATIENT
  Age: 12 Year
  Sex: Male

DRUGS (5)
  1. EFAVIRENZ [Suspect]
     Indication: HIV INFECTION
  2. LAMIVUDINE [Suspect]
     Indication: HIV INFECTION
  3. STAVUDINE [Suspect]
     Indication: HIV INFECTION
  4. VINCRISTINE [Suspect]
     Indication: KAPOSI^S SARCOMA AIDS RELATED
  5. ABACAVIR (ABACAVIR) [Concomitant]

REACTIONS (3)
  - Neuropathy peripheral [None]
  - Immune reconstitution inflammatory syndrome associated Kaposi^s sarcoma [None]
  - Pancytopenia [None]
